FAERS Safety Report 4998800-2 (Version None)
Quarter: 2006Q2

REPORT INFORMATION
  Report Type: 
  Country: None (occurrence: None)
  Receive Date: 20060510
  Receipt Date: 20051005
  Transmission Date: 20061013
  Serious: Yes (Disabling)
  Sender: FDA-Public Use
  Company Number: US-MERCK-0510USA04193

PATIENT
  Age: 30 Year
  Sex: Female
  Weight: 57 kg

DRUGS (1)
  1. VIOXX [Suspect]
     Indication: BACK DISORDER
     Route: 048
     Dates: start: 20000101, end: 20010801

REACTIONS (3)
  - CEREBROVASCULAR ACCIDENT [None]
  - DEPRESSION [None]
  - HYPERTENSION [None]
